FAERS Safety Report 7798223-7 (Version None)
Quarter: 2011Q4

REPORT INFORMATION
  Report Type: 
  Country: None (occurrence: None)
  Receive Date: 20111005
  Receipt Date: 20110929
  Transmission Date: 20120403
  Serious: Yes (Hospitalization)
  Sender: FDA-Public Use
  Company Number: US-JNJFOC-20110912446

PATIENT
  Sex: Male
  Weight: 83.92 kg

DRUGS (1)
  1. ULTRAM [Suspect]
     Indication: BACK DISORDER
     Dosage: AS NEEDED
     Route: 048
     Dates: start: 20050101, end: 20050101

REACTIONS (2)
  - HEADACHE [None]
  - MEMORY IMPAIRMENT [None]
